FAERS Safety Report 16730629 (Version 3)
Quarter: 2019Q4

REPORT INFORMATION
  Report Type: Spontaneous
  Country: US (occurrence: US)
  Receive Date: 20190822
  Receipt Date: 20191202
  Transmission Date: 20200122
  Serious: No
  Sender: FDA-Public Use
  Company Number: US-JNJFOC-20190809426

PATIENT
  Age: 62 Year
  Sex: Female
  Weight: 90.8 kg

DRUGS (1)
  1. TREMFYA [Suspect]
     Active Substance: GUSELKUMAB
     Indication: PSORIASIS
     Dosage: PRESCRIPTION NUMBER 00357894640110 AND 0060020547
     Route: 058
     Dates: start: 201905

REACTIONS (2)
  - Product dose omission [Not Recovered/Not Resolved]
  - Device malfunction [Unknown]

NARRATIVE: CASE EVENT DATE: 20190807
